FAERS Safety Report 5127566-0 (Version None)
Quarter: 2006Q4

REPORT INFORMATION
  Report Type: 
  Country: None (occurrence: None)
  Receive Date: 20061011
  Receipt Date: 20061002
  Transmission Date: 20070319
  Serious: Yes (Life-Threatening, Hospitalization)
  Sender: FDA-Public Use
  Company Number: 2006-01623

PATIENT
  Age: 64 Year
  Sex: Female
  Weight: 82 kg

DRUGS (10)
  1. VELCADE [Suspect]
     Indication: LEUKAEMIA PLASMACYTIC
     Dosage: 2.00 MG, UNK; INTRAVENOUS
     Route: 042
  2. VERGENTAN        (ALIZAPRIDE HYDROCHLORIDE) [Concomitant]
  3. RAMIPRIL [Concomitant]
  4. ALLOPURINOL [Concomitant]
  5. DURAGESIC-100 [Concomitant]
  6. CELEBREX [Concomitant]
  7. COTRIM FORTE         (SULFAMETHOXAZOLE, TRIMETHOPRIM) [Concomitant]
  8. DIPYRONE TAB [Concomitant]
  9. AMITRIPTYLINE HCL [Concomitant]
  10. METOPROLOL TARTRATE [Concomitant]

REACTIONS (3)
  - HAEMODIALYSIS [None]
  - HYPERKALAEMIA [None]
  - RENAL FAILURE ACUTE [None]
